FAERS Safety Report 6051893-6 (Version None)
Quarter: 2009Q1

REPORT INFORMATION
  Report Type: 
  Country: None (occurrence: None)
  Receive Date: 20090126
  Receipt Date: 20090114
  Transmission Date: 20090719
  Serious: Yes (Life-Threatening, Hospitalization)
  Sender: FDA-Public Use
  Company Number: FR-ROCHE-608426

PATIENT
  Sex: Female
  Weight: 65 kg

DRUGS (3)
  1. PEG-INTERFERON ALFA 2A (RO 25-8310) [Suspect]
     Indication: ANAEMIA OF CHRONIC DISEASE
     Dosage: DRUG TEMPORARILY STOPPED ON 13TH JAN 2009
     Route: 042
     Dates: start: 20080912, end: 20090109
  2. EPOETIN BETA [Suspect]
     Indication: ANAEMIA OF CHRONIC DISEASE
     Dosage: DRUG TEMPORARILY STOPPED ON 13TH JAN 2009
     Route: 042
     Dates: start: 20081009, end: 20090108
  3. RIBAVIRIN [Suspect]
     Indication: ANAEMIA OF CHRONIC DISEASE
     Route: 048
     Dates: end: 20090113

REACTIONS (1)
  - ASCITES [None]
